FAERS Safety Report 17444460 (Version 3)
Quarter: 2020Q4

REPORT INFORMATION
  Report Type: Report from Study
  Country: US (occurrence: US)
  Receive Date: 20200221
  Receipt Date: 20201209
  Transmission Date: 20210113
  Serious: Yes (Other)
  Sender: FDA-Public Use
  Company Number: US-BRISTOL-MYERS SQUIBB COMPANY-BMS-2020-014400

PATIENT
  Sex: Male
  Weight: 95.25 kg

DRUGS (10)
  1. TAMSULOSIN [Concomitant]
     Active Substance: TAMSULOSIN
     Indication: PRODUCT USED FOR UNKNOWN INDICATION
     Dosage: 5 MILLIGRAM
     Route: 065
  2. DICYCLOMINE HCL [Concomitant]
     Active Substance: DICYCLOMINE HYDROCHLORIDE
     Indication: PRODUCT USED FOR UNKNOWN INDICATION
     Dosage: 200 MILLIGRAM, PRN
     Route: 065
  3. LYRICA [Concomitant]
     Active Substance: PREGABALIN
     Indication: NERVE BLOCK
     Dosage: UNK
     Route: 065
  4. APIXABAN [Suspect]
     Active Substance: APIXABAN
     Indication: PULMONARY EMBOLISM
  5. GLIMEPIRIDE. [Concomitant]
     Active Substance: GLIMEPIRIDE
     Indication: PRODUCT USED FOR UNKNOWN INDICATION
     Dosage: 2 MG ONCE
     Route: 065
  6. ASPIRIN [ACETYLSALICYLIC ACID] [Suspect]
     Active Substance: ASPIRIN
     Indication: PAIN
     Route: 065
  7. VIREAD [Concomitant]
     Active Substance: TENOFOVIR DISOPROXIL FUMARATE
     Indication: PRODUCT USED FOR UNKNOWN INDICATION
     Dosage: 300 MG ONCE
     Route: 065
  8. APIXABAN [Suspect]
     Active Substance: APIXABAN
     Indication: DEEP VEIN THROMBOSIS
     Dosage: 5 MILLIGRAM, QD
     Route: 048
     Dates: start: 2019
  9. METFORMIN [Concomitant]
     Active Substance: METFORMIN HYDROCHLORIDE
     Indication: PRODUCT USED FOR UNKNOWN INDICATION
     Dosage: 1000 MILLIGRAM, QD
     Route: 065
  10. XANAX [Concomitant]
     Active Substance: ALPRAZOLAM
     Indication: PRODUCT USED FOR UNKNOWN INDICATION
     Dosage: 2 MILLIGRAM, TID
     Route: 065

REACTIONS (30)
  - Cervical vertebral fracture [Unknown]
  - Hepatic steatosis [Unknown]
  - Dizziness [Unknown]
  - Asthenia [Unknown]
  - Spinal fracture [Unknown]
  - Product label issue [Unknown]
  - Product dispensing error [Unknown]
  - Chest pain [Unknown]
  - Wound [Unknown]
  - Wound haemorrhage [Unknown]
  - Migraine [Unknown]
  - Injection site bruising [Unknown]
  - Cough [Unknown]
  - Tooth loss [Unknown]
  - Pain [Unknown]
  - Injection site haemorrhage [Unknown]
  - Hepatitis B [Unknown]
  - Loss of consciousness [Unknown]
  - Rib fracture [Unknown]
  - Hypoaesthesia [Unknown]
  - Headache [Unknown]
  - Off label use [Unknown]
  - Blood glucose decreased [Unknown]
  - Abdominal pain upper [Unknown]
  - Intervertebral disc protrusion [Unknown]
  - Fall [Unknown]
  - Hepatic failure [Unknown]
  - Wrong technique in product usage process [Unknown]
  - Nausea [Unknown]
  - Visual impairment [Unknown]
